FAERS Safety Report 9731412 (Version 1)
Quarter: 2013Q4

REPORT INFORMATION
  Report Type: Spontaneous
  Country: ES (occurrence: None)
  Receive Date: 20131203
  Receipt Date: 20131203
  Transmission Date: 20140711
  Serious: Yes (Life-Threatening, Hospitalization)
  Sender: FDA-Public Use
  Company Number: E2B_7252914

PATIENT
  Age: 61 Year
  Sex: Female

DRUGS (5)
  1. EUTHYROX 175 MCG [Suspect]
     Indication: HYPOTHYROIDISM
     Dosage: (175 MCG , 1 IN 1 D) ORAL (LEVOTHYROXINE SODIUM) (LEVOTHYROXINE SODIUM)
     Route: 048
     Dates: start: 2010
  2. ALDOCUMAR [Suspect]
     Indication: ATRIAL FIBRILLATION
     Dates: start: 2011
  3. FUROSEMIDE [Concomitant]
  4. METAMIZOL MAGNESIUM) (METAMIZOLE MAGNESIUM) (METAMIZOLE MAGNESIUM) [Concomitant]
  5. AMERIDE AMILORIDE HYDROCHLORIDE) (MODURETIC) (HYDROCHLOROTHIAZIDE,AMILORIDE HYDROCHLORIDE) [Concomitant]

REACTIONS (10)
  - Subdural haematoma [None]
  - Constipation [None]
  - Blood pressure diastolic decreased [None]
  - International normalised ratio increased [None]
  - Abdominal discomfort [None]
  - Haematocrit decreased [None]
  - Haemoglobin decreased [None]
  - Platelet count decreased [None]
  - White blood cell count decreased [None]
  - Blood creatinine increased [None]
